FAERS Safety Report 14040783 (Version 1)
Quarter: 2017Q4

REPORT INFORMATION
  Report Type: Spontaneous
  Country: US (occurrence: US)
  Receive Date: 20171004
  Receipt Date: 20171004
  Transmission Date: 20180321
  Serious: No
  Sender: FDA-Public Use
  Company Number: US-AMGEN-USASP2017093779

PATIENT
  Age: 66 Year
  Sex: Female

DRUGS (2)
  1. PROLIA [Suspect]
     Active Substance: DENOSUMAB
     Indication: OSTEOPOROSIS
     Dosage: 60 MG, UNK
     Route: 065
     Dates: start: 201512
  2. CALCIUM [Concomitant]
     Active Substance: CALCIUM

REACTIONS (5)
  - Dry skin [Recovering/Resolving]
  - Urticaria [Recovering/Resolving]
  - Vulvovaginal burning sensation [Recovering/Resolving]
  - Pruritus generalised [Recovering/Resolving]
  - Cystitis [Recovering/Resolving]
